FAERS Safety Report 17568865 (Version 3)
Quarter: 2020Q4

REPORT INFORMATION
  Report Type: Report from Study
  Country: US (occurrence: US)
  Receive Date: 20200321
  Receipt Date: 20201103
  Transmission Date: 20210113
  Serious: Yes (Death, Life-Threatening, Other)
  Sender: FDA-Public Use
  Company Number: NVSC2020US078295

PATIENT
  Age: 7 Year
  Sex: Female

DRUGS (4)
  1. KYMRIAH [Suspect]
     Active Substance: TISAGENLECLEUCEL
     Indication: B-CELL TYPE ACUTE LEUKAEMIA
     Dosage: UNK
     Route: 065
     Dates: start: 20190524
  2. KYMRIAH [Suspect]
     Active Substance: TISAGENLECLEUCEL
     Dosage: UNK
     Route: 065
     Dates: start: 20191018
  3. CYCLOPHOSPHAMIDE. [Concomitant]
     Active Substance: CYCLOPHOSPHAMIDE
     Indication: CHEMOTHERAPY
     Dosage: UNK
     Route: 065
  4. FLUDARABINE [Concomitant]
     Active Substance: FLUDARABINE PHOSPHATE
     Indication: CHEMOTHERAPY
     Dosage: UNK
     Route: 065

REACTIONS (18)
  - Cytopenia [Unknown]
  - Organ failure [Fatal]
  - Cytomegalovirus infection [Unknown]
  - Malignant neoplasm progression [Unknown]
  - Hypotension [Unknown]
  - Pyrexia [Unknown]
  - Hypoxia [Unknown]
  - Multiple use of single-use product [Unknown]
  - Cytokine release syndrome [Not Recovered/Not Resolved]
  - Cytokine release syndrome [Recovered/Resolved]
  - Neutropenia [Unknown]
  - Off label use [Unknown]
  - Respiratory failure [Fatal]
  - Pneumonitis [Unknown]
  - B-cell type acute leukaemia [Unknown]
  - Transplant failure [Unknown]
  - Hypogammaglobulinaemia [Unknown]
  - Treatment failure [Unknown]
